FAERS Safety Report 7906921-7 (Version None)
Quarter: 2011Q4

REPORT INFORMATION
  Report Type: 
  Country: None (occurrence: None)
  Receive Date: 20111109
  Receipt Date: 20111109
  Transmission Date: 20120403
  Serious: No
  Sender: FDA-Public Use
  Company Number: None

PATIENT
  Sex: Female

DRUGS (1)
  1. AVONEX [Suspect]
     Dosage: 30 MCG/0.5ML IM
     Route: 030

REACTIONS (3)
  - SWELLING FACE [None]
  - LIP SWELLING [None]
  - OEDEMA PERIPHERAL [None]
